FAERS Safety Report 17446566 (Version 1)
Quarter: 2020Q1

REPORT INFORMATION
  Report Type: Spontaneous
  Country: US (occurrence: US)
  Receive Date: 20200221
  Receipt Date: 20200221
  Transmission Date: 20200409
  Serious: No
  Sender: FDA-Public Use
  Company Number: US-PERRIGO-19US006730

PATIENT
  Age: 78 Year
  Sex: Male
  Weight: 44.9 kg

DRUGS (1)
  1. SELENIUM SULFIDE. [Suspect]
     Active Substance: SELENIUM SULFIDE
     Indication: PRODUCT USED FOR UNKNOWN INDICATION
     Dosage: 1 APPLICATION, SINGLE
     Route: 061
     Dates: start: 20190524, end: 20190524

REACTIONS (1)
  - Hair colour changes [Recovering/Resolving]

NARRATIVE: CASE EVENT DATE: 20190524
